FAERS Safety Report 6409560-2 (Version None)
Quarter: 2009Q4

REPORT INFORMATION
  Report Type: 
  Country: None (occurrence: None)
  Receive Date: 20091022
  Receipt Date: 20091013
  Transmission Date: 20100525
  Serious: Yes (Other)
  Sender: FDA-Public Use
  Company Number: ES-RANBAXY-2009RR-28616

PATIENT
  Age: 35 Year
  Sex: Male

DRUGS (3)
  1. IBUPROFEN [Suspect]
     Indication: JOINT SPRAIN
     Dosage: UNK
  2. IBUPROFEN [Suspect]
     Dosage: 600 MG, UNK
  3. IBUPROFEN [Suspect]

REACTIONS (2)
  - ANGIOEDEMA [None]
  - MENINGITIS ASEPTIC [None]
